FAERS Safety Report 19267613 (Version 2)
Quarter: 2021Q4

REPORT INFORMATION
  Report Type: Spontaneous
  Country: US (occurrence: US)
  Receive Date: 20210518
  Receipt Date: 20211111
  Transmission Date: 20220303
  Serious: Yes (Hospitalization)
  Sender: FDA-Public Use
  Company Number: US-LUPIN PHARMACEUTICALS INC.-2021-07076

PATIENT
  Age: 88 Year
  Sex: Female

DRUGS (1)
  1. CLOBETASOL PROPIONATE [Suspect]
     Active Substance: CLOBETASOL PROPIONATE
     Indication: Dermatitis
     Dosage: UNK (FOR OVER A YEAR)
     Route: 061

REACTIONS (3)
  - Secondary adrenocortical insufficiency [Recovered/Resolved]
  - Skin atrophy [Unknown]
  - Application site atrophy [Unknown]
